FAERS Safety Report 17785450 (Version 5)
Quarter: 2022Q1

REPORT INFORMATION
  Report Type: Report from Study
  Country: BE (occurrence: BE)
  Receive Date: 20200514
  Receipt Date: 20220328
  Transmission Date: 20220424
  Serious: Yes (Hospitalization)
  Sender: FDA-Public Use
  Company Number: BE-MERCK HEALTHCARE KGAA-9161574

PATIENT
  Age: 60 Year
  Sex: Male
  Weight: 73 kg

DRUGS (6)
  1. GEMCITABINE HYDROCHLORIDE [Suspect]
     Active Substance: GEMCITABINE HYDROCHLORIDE
     Indication: Bladder transitional cell carcinoma
     Dosage: D1 AND D15 Q4W
     Route: 042
     Dates: start: 20200225
  2. GEMCITABINE HYDROCHLORIDE [Suspect]
     Active Substance: GEMCITABINE HYDROCHLORIDE
     Dosage: 2000 MG, CYCLIC (ONCE EVERY 4 WEEKS)
     Route: 042
     Dates: start: 20200407, end: 20200407
  3. PACLITAXEL [Suspect]
     Active Substance: PACLITAXEL
     Indication: Bladder transitional cell carcinoma
     Dosage: D1 AND D15 Q4W
     Route: 042
     Dates: start: 20200225
  4. PACLITAXEL [Suspect]
     Active Substance: PACLITAXEL
     Dosage: D1 AND D15 Q4W
     Route: 042
     Dates: start: 20200407, end: 20200407
  5. AVELUMAB [Suspect]
     Active Substance: AVELUMAB
     Indication: Bladder transitional cell carcinoma
     Dosage: UNK UNK, CYCLIC (ONCE EVERY TWO WEEKS)
     Route: 042
     Dates: start: 20200225
  6. AVELUMAB [Suspect]
     Active Substance: AVELUMAB
     Dosage: 740 MG, CYCLIC (ONCE EVERY TWO WEEKS)
     Route: 042
     Dates: start: 20200407, end: 20200407

REACTIONS (1)
  - Pyelonephritis [Recovered/Resolved]

NARRATIVE: CASE EVENT DATE: 20200419
